FAERS Safety Report 14480832 (Version 1)
Quarter: 2018Q1

REPORT INFORMATION
  Report Type: Report from Study
  Country: IT (occurrence: IT)
  Receive Date: 20180202
  Receipt Date: 20180202
  Transmission Date: 20180509
  Serious: Yes (Hospitalization)
  Sender: FDA-Public Use
  Company Number: IT-TEVA-2018-IT-850880

PATIENT
  Age: 86 Year
  Sex: Female

DRUGS (8)
  1. DELTACORTENE [Concomitant]
     Active Substance: PREDNISONE
  2. LANSOPRAZOLE. [Concomitant]
     Active Substance: LANSOPRAZOLE
  3. TACHIPIRINA [Concomitant]
     Active Substance: ACETAMINOPHEN
  4. LEXOTAN [Concomitant]
     Active Substance: BROMAZEPAM
  5. ALIFLUS [Concomitant]
     Active Substance: FLUTICASONE PROPIONATE\SALMETEROL XINAFOATE
  6. ANASTROZOLE. [Concomitant]
     Active Substance: ANASTROZOLE
  7. CONTRAMAL [Concomitant]
     Active Substance: TRAMADOL HYDROCHLORIDE
  8. OLANZAPINE. [Suspect]
     Active Substance: OLANZAPINE
     Indication: PSYCHOTIC DISORDER
     Route: 048
     Dates: start: 20170111, end: 20170420

REACTIONS (1)
  - Atrial fibrillation [Unknown]

NARRATIVE: CASE EVENT DATE: 20170420
